FAERS Safety Report 7054809-9 (Version None)
Quarter: 2010Q4

REPORT INFORMATION
  Report Type: 
  Country: None (occurrence: None)
  Receive Date: 20101021
  Receipt Date: 20101008
  Transmission Date: 20110411
  Serious: Yes (Hospitalization, Other)
  Sender: FDA-Public Use
  Company Number: US-AMGEN GMBH-QUU432895

PATIENT

DRUGS (29)
  1. ARANESP [Suspect]
     Indication: DIALYSIS
     Dosage: 100 A?G, QWK
     Route: 042
     Dates: start: 20070920, end: 20100827
  2. RENALTABS [Concomitant]
     Dosage: UNK UNK, QD
  3. PREDNISONE TAB [Concomitant]
     Dosage: 5 MG, QD
     Route: 048
  4. MYCOPHENOLATE MOFETIL [Concomitant]
     Dosage: 500 MG, TID
     Route: 048
  5. LABETALOL HYDROCHLORIDE [Concomitant]
     Dosage: 100 MG, BID
     Route: 048
  6. LOVAZA [Concomitant]
     Dosage: 1200 MG, QD
     Route: 048
  7. CEFEPIME [Concomitant]
     Dosage: UNK UNK, PRN
  8. GENTAMYCIN SULFATE [Concomitant]
     Dosage: .1 %, QD
     Route: 061
  9. CALCIUM CARBONATE [Concomitant]
     Dosage: UNK UNK, QID
     Route: 048
  10. MULTIPLE VITAMINS [Concomitant]
     Dosage: UNK UNK, QD
     Route: 048
  11. COPPER [Concomitant]
     Dosage: UNK UNK, QOD
     Dates: start: 20100112
  12. TOCOPHEROL CONCENTRATE CAP [Concomitant]
     Dosage: UNK UNK, 2 TIMES/WK
     Route: 048
  13. ZINC [Concomitant]
     Dosage: UNK UNK, QD
     Route: 048
  14. BIOTIN [Concomitant]
     Dosage: UNK UNK, QD
     Route: 048
  15. CYANOCOBALAMIN [Concomitant]
     Dosage: UNK UNK, QD
     Route: 048
  16. RETINOL [Concomitant]
     Dosage: UNK UNK, 2 TIMES/WK
  17. PHYTONADIONE [Concomitant]
     Dosage: UNK UNK, QWK
     Route: 048
  18. COENZYME Q10 [Concomitant]
     Dosage: UNK UNK, QD
     Route: 048
  19. L-LYSINE [Concomitant]
     Dosage: 1000 MG, BID
     Route: 048
  20. BACITRACIN [Concomitant]
     Dosage: UNK UNK, UNK
  21. CAFFEINE [Concomitant]
     Dosage: 200 MG, BID
     Route: 048
  22. ASPIRIN [Concomitant]
     Dosage: 81 MG, UNK
  23. UNSPECIFIED MEDICATION [Concomitant]
  24. LISINOPRIL [Concomitant]
     Dosage: 20 MG, BID
     Route: 048
     Dates: start: 20070926
  25. VENOFER [Concomitant]
     Dosage: UNK UNK, QWK
  26. OLANZAPINE [Concomitant]
     Dosage: 10 MG, BID
  27. VALACYCLOVIR HYDROCHLORIDE [Concomitant]
     Dosage: 500 MG, QD
     Route: 048
  28. TRIMETHOPRIM + SULFAMETHOXAZOLE [Concomitant]
     Dosage: UNK UNK, 3 TIMES/WK
  29. CALCIUM ACETATE [Concomitant]
     Dosage: 667 MG, UNK
     Route: 048

REACTIONS (5)
  - ANAEMIA [None]
  - APLASIA PURE RED CELL [None]
  - EPISTAXIS [None]
  - MALNUTRITION [None]
  - NEUTROPENIA [None]
